FAERS Safety Report 19990768 (Version 2)
Quarter: 2021Q4

REPORT INFORMATION
  Report Type: Spontaneous
  Country: IT (occurrence: IT)
  Receive Date: 20211025
  Receipt Date: 20211025
  Transmission Date: 20220303
  Serious: Yes (Other)
  Sender: FDA-Public Use
  Company Number: IT-PFIZER INC-202101356614

PATIENT
  Age: 42 Year
  Sex: Male

DRUGS (5)
  1. SERTRALINE HYDROCHLORIDE [Suspect]
     Active Substance: SERTRALINE HYDROCHLORIDE
     Dosage: 300 MG, DAILY
  2. BUPROPION [Suspect]
     Active Substance: BUPROPION
     Dosage: 600 MG, DAILY
  3. TRAZODONE [Suspect]
     Active Substance: TRAZODONE HYDROCHLORIDE
     Dosage: 75 MG, DAILY
  4. LAMOTRIGINE [Suspect]
     Active Substance: LAMOTRIGINE
     Dosage: 300 MG, DAILY
  5. DELORAZEPAM [Suspect]
     Active Substance: DELORAZEPAM
     Dosage: 2 MG, DAILY

REACTIONS (3)
  - Suicidal ideation [Unknown]
  - Agoraphobia [Unknown]
  - Sexual dysfunction [Unknown]
